FAERS Safety Report 16335193 (Version 1)
Quarter: 2019Q2

REPORT INFORMATION
  Report Type: Spontaneous
  Country: US (occurrence: US)
  Receive Date: 20190413
  Receipt Date: 20190413
  Transmission Date: 20190711
  Serious: No
  Sender: FDA-Public Use
  Company Number: None

PATIENT
  Age: 74 Year
  Sex: Female
  Weight: 57.4 kg

DRUGS (3)
  1. 5-FLUOROURACIL (5-FU) [Suspect]
     Active Substance: FLUOROURACIL
     Dates: end: 20180718
  2. LEUCOVORIN. [Suspect]
     Active Substance: LEUCOVORIN
     Dates: end: 20180716
  3. OXALIPLATIN. [Suspect]
     Active Substance: OXALIPLATIN
     Dates: end: 20180716

REACTIONS (2)
  - Blood pressure increased [None]
  - Neutropenia [None]

NARRATIVE: CASE EVENT DATE: 20180702
